FAERS Safety Report 22540368 (Version 1)
Quarter: 2023Q2

REPORT INFORMATION
  Report Type: Spontaneous
  Country: KR (occurrence: KR)
  Receive Date: 20230609
  Receipt Date: 20230609
  Transmission Date: 20230721
  Serious: Yes (Other)
  Sender: FDA-Public Use
  Company Number: KR-MYLANLABS-2023M1057308

PATIENT
  Age: 60 Year
  Sex: Female

DRUGS (2)
  1. CELEBREX [Suspect]
     Active Substance: CELECOXIB
     Indication: Synovitis
     Dosage: 2 DOSAGE FORM
     Route: 048
     Dates: start: 20190315, end: 20190316
  2. CELEBREX [Suspect]
     Active Substance: CELECOXIB
     Indication: Tenosynovitis

REACTIONS (2)
  - Dermatitis exfoliative [Recovered/Resolved]
  - Off label use [Unknown]

NARRATIVE: CASE EVENT DATE: 20190315
